FAERS Safety Report 8135977-4 (Version None)
Quarter: 2012Q1

REPORT INFORMATION
  Report Type: 
  Country: None (occurrence: None)
  Receive Date: 20120214
  Receipt Date: 20120206
  Transmission Date: 20120608
  Serious: Yes (Other)
  Sender: FDA-Public Use
  Company Number: DE-COVIDIEN/TYCO HEALTHCARE/MALLINCKRODT-T201200575

PATIENT
  Age: 41 Year
  Sex: Female

DRUGS (1)
  1. ULTRA-TECHNEKOW FM [Suspect]
     Indication: SCAN THYROID GLAND
     Dosage: 74 MBQ, SINGLE
     Route: 042
     Dates: start: 20110101, end: 20110101

REACTIONS (8)
  - BLINDNESS TRANSIENT [None]
  - INJECTION SITE ERYTHEMA [None]
  - HYPOAESTHESIA [None]
  - SPEECH DISORDER [None]
  - FATIGUE [None]
  - VOMITING [None]
  - BLOOD URINE PRESENT [None]
  - NAUSEA [None]
